FAERS Safety Report 5313747-X (Version None)
Quarter: 2007Q2

REPORT INFORMATION
  Report Type: 
  Country: None (occurrence: None)
  Receive Date: 20070426
  Receipt Date: 20070417
  Transmission Date: 20071010
  Serious: Yes (Hospitalization)
  Sender: FDA-Public Use
  Company Number: TPG2007A00315

PATIENT
  Age: 63 Year
  Sex: Male

DRUGS (10)
  1. ACTOS [Suspect]
     Indication: DIABETES MELLITUS NON-INSULIN-DEPENDENT
     Dosage: 45 MG (45 MG, 1 IN 1 D) PER ORAL
     Route: 048
     Dates: start: 20060101, end: 20061001
  2. DIABETEX (METFORMIN HYDROCHLORIDE) [Concomitant]
  3. COSAAR PLUS (HYDROCHLOROTHIAZIDE, LOSARTAN POTASSIUM) [Concomitant]
  4. CARVEDILOL [Concomitant]
  5. LESCOL MR (FLUVASTATIN) [Concomitant]
  6. SPIRIVA [Concomitant]
  7. PLAVIX [Concomitant]
  8. FURON (FUROSEMIDE) [Concomitant]
  9. GLIMEPIRIDE [Concomitant]
  10. NORVASC [Concomitant]

REACTIONS (4)
  - CARDIAC FAILURE [None]
  - CORONARY ARTERIAL STENT INSERTION [None]
  - GLYCOSYLATED HAEMOGLOBIN INCREASED [None]
  - PULMONARY OEDEMA [None]
